FAERS Safety Report 16088953 (Version 1)
Quarter: 2019Q1

REPORT INFORMATION
  Report Type: Spontaneous
  Country: US (occurrence: US)
  Receive Date: 20190215
  Receipt Date: 20190215
  Transmission Date: 20190418
  Serious: No
  Sender: FDA-Public Use
  Company Number: None

PATIENT
  Age: 31 Year
  Sex: Female

DRUGS (2)
  1. MYCOPHENOLATE MOFETIL 500MG TABLET [Suspect]
     Active Substance: MYCOPHENOLATE MOFETIL
     Indication: VITAMIN B2
     Route: 048
     Dates: start: 20190121
  2. MULTIVITAMIN [Concomitant]
     Active Substance: VITAMINS

REACTIONS (1)
  - Dry skin [None]
